FAERS Safety Report 13408657 (Version 1)
Quarter: 2017Q2

REPORT INFORMATION
  Report Type: Spontaneous
  Country: US (occurrence: US)
  Receive Date: 20170406
  Receipt Date: 20170406
  Transmission Date: 20170830
  Serious: Yes (Hospitalization)
  Sender: FDA-Public Use
  Company Number: None

PATIENT
  Age: 59 Year
  Sex: Male

DRUGS (16)
  1. ONDANSETRON [Concomitant]
     Active Substance: ONDANSETRON
  2. MULTI VITAMIN [Concomitant]
     Active Substance: VITAMINS
  3. K TAB [Concomitant]
  4. LONSURF [Suspect]
     Active Substance: TIPIRACIL HYDROCHLORIDE\TRIFLURIDINE
     Indication: COLON CANCER
     Route: 048
     Dates: start: 20170215
  5. TRAMADOL. [Concomitant]
     Active Substance: TRAMADOL
  6. FERROUS [Concomitant]
     Active Substance: IRON
  7. BUMETANIDE. [Concomitant]
     Active Substance: BUMETANIDE
  8. FENTANYL. [Concomitant]
     Active Substance: FENTANYL
  9. PROCHLORPER [Concomitant]
  10. CARAFATE [Concomitant]
     Active Substance: SUCRALFATE
  11. LONSURF [Suspect]
     Active Substance: TIPIRACIL HYDROCHLORIDE\TRIFLURIDINE
     Indication: COLON CANCER
     Route: 048
     Dates: start: 20170215
  12. DILAUDID [Concomitant]
     Active Substance: HYDROMORPHONE HYDROCHLORIDE
  13. VITAMIN D [Concomitant]
     Active Substance: CHOLECALCIFEROL
  14. AVODART [Concomitant]
     Active Substance: DUTASTERIDE
  15. FLOMAX [Concomitant]
     Active Substance: TAMSULOSIN HYDROCHLORIDE
  16. REGLAN [Concomitant]
     Active Substance: METOCLOPRAMIDE HYDROCHLORIDE

REACTIONS (3)
  - Confusional state [None]
  - Fungal infection [None]
  - Therapy cessation [None]

NARRATIVE: CASE EVENT DATE: 20170315
